FAERS Safety Report 16757204 (Version 3)
Quarter: 2019Q3

REPORT INFORMATION
  Report Type: Spontaneous
  Country: US (occurrence: US)
  Receive Date: 20190829
  Receipt Date: 20190916
  Transmission Date: 20191005
  Serious: No
  Sender: FDA-Public Use
  Company Number: US-ELI_LILLY_AND_COMPANY-US201908014456

PATIENT
  Sex: Female

DRUGS (1)
  1. FORTEO [Suspect]
     Active Substance: TERIPARATIDE
     Indication: OSTEOPOROSIS
     Dosage: UNK, UNKNOWN
     Route: 065
     Dates: start: 20181017

REACTIONS (4)
  - Product dose omission [Unknown]
  - Incorrect product administration duration [Unknown]
  - Product storage error [Unknown]
  - Confusional state [Unknown]

NARRATIVE: CASE EVENT DATE: 20190717
